FAERS Safety Report 12089323 (Version 2)
Quarter: 2016Q1

REPORT INFORMATION
  Report Type: Spontaneous
  Country: IT (occurrence: IT)
  Receive Date: 20160218
  Receipt Date: 20160218
  Transmission Date: 20160526
  Serious: Yes (Disabling, Other)
  Sender: FDA-Public Use
  Company Number: IT-ACTAVIS-2016-03300

PATIENT
  Age: 30 Year
  Sex: Male

DRUGS (8)
  1. AZATHIOPRINE (UNKNOWN) [Suspect]
     Active Substance: AZATHIOPRINE
     Dosage: 0.17 MG/KG, DAILY
     Route: 065
     Dates: start: 200501
  2. METHYLPREDNISOLONE (UNKNOWN) [Suspect]
     Active Substance: METHYLPREDNISOLONE
     Indication: BEHCET^S SYNDROME
     Dosage: UNK
     Route: 042
     Dates: start: 200206, end: 200501
  3. PREDNISONE (UNKNOWN) [Suspect]
     Active Substance: PREDNISONE
     Indication: BEHCET^S SYNDROME
     Dosage: UNK
     Route: 048
     Dates: start: 200206, end: 200501
  4. ISONIAZID. [Concomitant]
     Active Substance: ISONIAZID
     Indication: ANTIBIOTIC PROPHYLAXIS
     Dosage: 300 MG, DAILY
     Route: 065
  5. AZATHIOPRINE (UNKNOWN) [Suspect]
     Active Substance: AZATHIOPRINE
     Indication: BEHCET^S SYNDROME
     Dosage: 15 MG, 1/WEEK
     Route: 065
     Dates: start: 200202
  6. TRIAMCINOLONE ACETONIDE (AMALLC) [Suspect]
     Active Substance: TRIAMCINOLONE ACETONIDE
     Indication: BEHCET^S SYNDROME
     Dosage: UNK
     Route: 056
     Dates: start: 200206, end: 200501
  7. MYCOPHENOLATE MOFETIL (UNKNOWN) [Suspect]
     Active Substance: MYCOPHENOLATE MOFETIL
     Indication: BEHCET^S SYNDROME
     Dosage: 2-3 G, DAILY
     Route: 065
     Dates: start: 200601, end: 200703
  8. METHOTREXATE (METHOTREXATE SODIUM) [Suspect]
     Active Substance: METHOTREXATE SODIUM
     Indication: BEHCET^S SYNDROME
     Dosage: 2 MG/KG, DAILY
     Route: 065
     Dates: start: 200202

REACTIONS (7)
  - Pneumonia [Unknown]
  - Hypertension [Unknown]
  - Hepatotoxicity [Unknown]
  - Macular ischaemia [Unknown]
  - Osteoporosis [Unknown]
  - Glaucoma [Unknown]
  - Spinal fracture [Unknown]

NARRATIVE: CASE EVENT DATE: 2005
